FAERS Safety Report 9542969 (Version 1)
Quarter: 2013Q3

REPORT INFORMATION
  Report Type: Spontaneous
  Country: SG (occurrence: SG)
  Receive Date: 20130923
  Receipt Date: 20130923
  Transmission Date: 20140515
  Serious: Yes (Other)
  Sender: FDA-Public Use
  Company Number: SG-PFIZER INC-2013268799

PATIENT
  Age: 31 Year
  Sex: Female

DRUGS (1)
  1. GLIPIZIDE [Suspect]
     Route: 048

REACTIONS (3)
  - Eye pruritus [Recovered/Resolved]
  - Eyelid exfoliation [Recovered/Resolved]
  - Erythema [Recovered/Resolved]
